FAERS Safety Report 7825305-3 (Version None)
Quarter: 2011Q4

REPORT INFORMATION
  Report Type: 
  Country: None (occurrence: None)
  Receive Date: 20111019
  Receipt Date: 20110901
  Transmission Date: 20120403
  Serious: Yes (Other)
  Sender: FDA-Public Use
  Company Number: JP-GLAXOSMITHKLINE-B0744505A

PATIENT
  Sex: Female

DRUGS (2)
  1. TYKERB [Suspect]
     Indication: PRODUCT USED FOR UNKNOWN INDICATION
     Route: 048
     Dates: start: 20110120
  2. XELODA [Concomitant]
     Route: 048
     Dates: start: 20110120, end: 20110525

REACTIONS (3)
  - PARONYCHIA [None]
  - PNEUMONIA [None]
  - ACNE [None]
